FAERS Safety Report 8890064 (Version 6)
Quarter: 2013Q3

REPORT INFORMATION
  Report Type: Spontaneous
  Country: US (occurrence: US)
  Receive Date: 20121107
  Receipt Date: 20130920
  Transmission Date: 20140515
  Serious: Yes (Death, Hospitalization, Other)
  Sender: FDA-Public Use
  Company Number: US-009507513-1211USA002202

PATIENT
  Sex: Female
  Weight: 65.76 kg

DRUGS (9)
  1. FOSAMAX [Suspect]
     Indication: OSTEOPOROSIS
     Dosage: 10 MG, QD
     Route: 048
     Dates: start: 19960815, end: 19970811
  2. FOSAMAX [Suspect]
     Dosage: 70 MG, QW
     Route: 048
     Dates: end: 200711
  3. FOSAMAX [Suspect]
     Dosage: 10 MG, QD
     Route: 048
     Dates: start: 19970909
  4. BONIVA [Suspect]
     Indication: OSTEOPOROSIS
     Dosage: 150 MG, QM
     Route: 048
     Dates: start: 200711, end: 20100322
  5. VITAMINS (UNSPECIFIED) [Concomitant]
     Dosage: UNK UNK, QD
     Dates: start: 1990
  6. CALCIUM (UNSPECIFIED) [Concomitant]
     Dosage: 500 MG, UNK
     Dates: start: 1990
  7. CYANOCOBALAMIN [Concomitant]
     Dosage: UNK MG, UNK
     Dates: start: 1990
  8. CHOLECALCIFEROL [Concomitant]
     Dosage: 10000 IU, UNK
     Dates: start: 1990
  9. VITAMIN C [Concomitant]
     Dosage: 500 MG, UNK
     Dates: start: 1990

REACTIONS (82)
  - Hemiplegia [Unknown]
  - Low turnover osteopathy [Unknown]
  - Cough [Not Recovered/Not Resolved]
  - Sinus congestion [Unknown]
  - Dyspnoea exertional [Unknown]
  - Postmenopausal haemorrhage [Unknown]
  - Urinary tract infection [Not Recovered/Not Resolved]
  - Head injury [Unknown]
  - Fall [Unknown]
  - Stent placement [Unknown]
  - Coronary angioplasty [Unknown]
  - Arteriosclerosis coronary artery [Unknown]
  - Electrocardiogram T wave abnormal [Unknown]
  - Sinus bradycardia [Unknown]
  - Atrioventricular block first degree [Unknown]
  - Adverse drug reaction [Unknown]
  - Adverse drug reaction [Unknown]
  - Cyst [Unknown]
  - Hypercholesterolaemia [Unknown]
  - Aortic aneurysm [Unknown]
  - Spinal compression fracture [Unknown]
  - Osteoporotic fracture [Unknown]
  - Osteoarthritis [Unknown]
  - Intervertebral disc degeneration [Unknown]
  - Vertebral foraminal stenosis [Unknown]
  - Vertebral foraminal stenosis [Unknown]
  - Intervertebral disc protrusion [Unknown]
  - Fall [Not Recovered/Not Resolved]
  - Bone lesion [Unknown]
  - X-ray limb abnormal [Unknown]
  - Sick sinus syndrome [Unknown]
  - Stent placement [Unknown]
  - Fracture delayed union [Recovering/Resolving]
  - Depression [Unknown]
  - Intervertebral disc degeneration [Unknown]
  - Hiatus hernia [Unknown]
  - Aortic arteriosclerosis [Unknown]
  - Splenic calcification [Unknown]
  - Intervertebral disc calcification [Unknown]
  - Skeletal injury [Unknown]
  - Spinal compression fracture [Unknown]
  - Fatigue [Unknown]
  - Insomnia [Unknown]
  - Hypertension [Unknown]
  - Dementia [Unknown]
  - Decreased appetite [Unknown]
  - Weight decreased [Unknown]
  - Fall [Unknown]
  - Spinal compression fracture [Unknown]
  - Kyphosis [Unknown]
  - Fall [Unknown]
  - Contusion [Unknown]
  - Excoriation [Unknown]
  - Eating disorder [Unknown]
  - Vascular calcification [Unknown]
  - Fall [Unknown]
  - Asthenia [Unknown]
  - Headache [Unknown]
  - Bone pain [Recovering/Resolving]
  - Diarrhoea [Unknown]
  - Gastrooesophageal reflux disease [Unknown]
  - Abdominal distension [Unknown]
  - Femur fracture [Unknown]
  - Open reduction of fracture [Unknown]
  - Fall [Unknown]
  - Cerebrovascular accident [Unknown]
  - Myocardial infarction [Unknown]
  - Aortic valve sclerosis [Unknown]
  - Mitral valve incompetence [Unknown]
  - Left atrial dilatation [Unknown]
  - Left ventricular hypertrophy [Unknown]
  - Aortic valve incompetence [Unknown]
  - Cardiac pacemaker insertion [Unknown]
  - Blood product transfusion [Unknown]
  - Haemorrhage [Unknown]
  - Coronary artery disease [Fatal]
  - Adverse drug reaction [Recovered/Resolved]
  - Confusional state [Recovered/Resolved]
  - Anaemia postoperative [Unknown]
  - Atrial fibrillation [Not Recovered/Not Resolved]
  - Dyslipidaemia [Unknown]
  - Peroneal nerve palsy [Unknown]
